FAERS Safety Report 8860354 (Version 1)
Quarter: 2012Q4

REPORT INFORMATION
  Report Type: 
  Country: US (occurrence: US)
  Receive Date: 20121025
  Receipt Date: 20121025
  Transmission Date: 20130627
  Serious: No
  Sender: FDA-Public Use
  Company Number: US-PFIZER INC-2012264806

PATIENT
  Sex: Female

DRUGS (2)
  1. EFFEXOR [Suspect]
     Dosage: 150 mg, Daily
  2. EFFEXOR [Suspect]
     Dosage: 75 mg, UNK

REACTIONS (3)
  - Nausea [Unknown]
  - Vomiting [Unknown]
  - Malaise [Unknown]
